FAERS Safety Report 4845786-7 (Version None)
Quarter: 2005Q4

REPORT INFORMATION
  Report Type: 
  Country: None (occurrence: None)
  Receive Date: 20051206
  Receipt Date: 20050720
  Transmission Date: 20060501
  Serious: Yes (Life-Threatening, Hospitalization)
  Sender: FDA-Public Use
  Company Number: US-BRISTOL-MYERS SQUIBB COMPANY-13045497

PATIENT
  Age: 44 Year
  Sex: Male
  Weight: 115 kg

DRUGS (36)
  1. CETUXIMAB [Suspect]
     Indication: OESOPHAGEAL CARCINOMA
     Dosage: THERAPY START DATE 24-JUN-05. GIVEN WEEK 1-9. LAST ADMINISTERED 26-AUG-2005.
     Route: 042
     Dates: start: 20050701, end: 20050701
  2. CISPLATIN [Suspect]
     Indication: OESOPHAGEAL CARCINOMA
     Dosage: GIVEN WEEK 1, 2, 4 + 5.THERAPY START DATE 01-JU1-05.  LAST ADMINISTERED 08-AUG-2005.
     Route: 042
     Dates: start: 20050701, end: 20050701
  3. IRINOTECAN HCL [Suspect]
     Indication: OESOPHAGEAL CARCINOMA
     Dosage: GIVEN WEEKS 1, 2, 4 + 5. THERAPY START DATE 01-JU1-05.  LAST ADMINISTERED 08-AUG-2005.
     Route: 042
     Dates: start: 20050701, end: 20050701
  4. RADIATION THERAPY [Suspect]
     Indication: OESOPHAGEAL CARCINOMA
     Dosage: INITIAL TX DATE: 27-JUN-05.  GIVEN AT 180 GCY 01-5, WEEK 1-14. LAST ON 09-AUG-2005.
     Dates: start: 20050705, end: 20050705
  5. ADDERALL 10 [Concomitant]
  6. ALPRAZOLAM [Concomitant]
  7. CARAFATE [Concomitant]
  8. COGENTIN [Concomitant]
  9. DIOVAN [Concomitant]
  10. IMDUR [Concomitant]
  11. LIPITOR [Concomitant]
  12. NEXIUM [Concomitant]
  13. PROZAC [Concomitant]
  14. RISPERDAL [Concomitant]
  15. TOPAMAX [Concomitant]
  16. TRICOR [Concomitant]
  17. WELLBUTRIN [Concomitant]
  18. ZETIA [Concomitant]
  19. ZYPREXA [Concomitant]
  20. ZOFRAN [Concomitant]
  21. DECADRON [Concomitant]
  22. IMODIUM [Concomitant]
  23. PREVACID [Concomitant]
  24. LOPRESSOR [Concomitant]
  25. COZAAR [Concomitant]
  26. COMPAZINE [Concomitant]
  27. AMANTADINE HCL [Concomitant]
  28. ASPIRIN [Concomitant]
  29. CLINDAMYCIN [Concomitant]
  30. DEPAKOTE [Concomitant]
  31. NPH INSULIN [Concomitant]
  32. REGULAR INSULIN [Concomitant]
  33. IRON [Concomitant]
  34. OXYCODONE [Concomitant]
  35. OXYCONTIN [Concomitant]
  36. PEPCID [Concomitant]

REACTIONS (8)
  - COLITIS [None]
  - DEHYDRATION [None]
  - DIARRHOEA [None]
  - GASTRITIS EROSIVE [None]
  - HAEMORRHOIDAL HAEMORRHAGE [None]
  - HYPOVOLAEMIA [None]
  - PNEUMONIA [None]
  - PULMONARY EMBOLISM [None]
